FAERS Safety Report 6977890-1 (Version None)
Quarter: 2010Q3

REPORT INFORMATION
  Report Type: 
  Country: None (occurrence: None)
  Receive Date: 20100913
  Receipt Date: 20100907
  Transmission Date: 20110219
  Serious: Yes (Hospitalization, Other)
  Sender: FDA-Public Use
  Company Number: US-SHIRE-SPV1-2010-01546

PATIENT
  Sex: Male
  Weight: 79.365 kg

DRUGS (1)
  1. ADDERALL XR 10 [Suspect]
     Indication: ATTENTION DEFICIT/HYPERACTIVITY DISORDER
     Dosage: 120 MG, 1X/DAY:QD
     Route: 048
     Dates: end: 20040501

REACTIONS (3)
  - CARDIAC ARREST [None]
  - HYPERTROPHIC CARDIOMYOPATHY [None]
  - OVERDOSE [None]
